FAERS Safety Report 18817979 (Version 1)
Quarter: 2021Q1

REPORT INFORMATION
  Report Type: Report from Study
  Country: None (occurrence: US)
  Receive Date: 20210201
  Receipt Date: 20210201
  Transmission Date: 20210419
  Serious: Yes (Hospitalization)
  Sender: FDA-Public Use
  Company Number: US-ABBVIE-21K-163-3754308-00

PATIENT
  Sex: Female

DRUGS (2)
  1. IMBRUVICA [Suspect]
     Active Substance: IBRUTINIB
     Indication: LYMPHOCYTOSIS
     Route: 048
     Dates: start: 20190424
  2. ASPIRIN. [Suspect]
     Active Substance: ASPIRIN
     Indication: ABDOMINAL PAIN UPPER
     Route: 065

REACTIONS (4)
  - Gastric ulcer [Unknown]
  - Haemorrhage [Unknown]
  - Anaemia [Unknown]
  - Abdominal pain upper [Unknown]
